FAERS Safety Report 10168764 (Version 1)
Quarter: 2014Q2

REPORT INFORMATION
  Report Type: Spontaneous
  Country: US (occurrence: None)
  Receive Date: 20140509
  Receipt Date: 20140509
  Transmission Date: 20141212
  Serious: Yes (Other)
  Sender: FDA-Public Use
  Company Number: US-SEPTODONT-201401926

PATIENT
  Age: 53 Year
  Sex: Male
  Weight: 100 kg

DRUGS (1)
  1. LIDOCAINE HYDROCHLORIDE AND EPINEPHRINE BITARTRATE [Suspect]
     Indication: LOCAL ANAESTHESIA
     Route: 004
     Dates: start: 20140305, end: 20140305

REACTIONS (2)
  - Hypoaesthesia [None]
  - Temporomandibular joint syndrome [None]
